FAERS Safety Report 19465276 (Version 1)
Quarter: 2021Q2

REPORT INFORMATION
  Report Type: Report from Study
  Country: US (occurrence: US)
  Receive Date: 20210624
  Receipt Date: 20210624
  Transmission Date: 20210717
  Serious: Yes (Other)
  Sender: FDA-Public Use
  Company Number: US-JNJFOC-20200616713

PATIENT

DRUGS (1)
  1. TOPIRAMATE. [Suspect]
     Active Substance: TOPIRAMATE
     Indication: CYCLIC VOMITING SYNDROME
     Dosage: 25 MG ONCE DAILY AND TITRATE BY 25 MG EACH WEEK TO A TARGET DOSE OF 100 MG ONCE OR TWICE DAILY
     Route: 048

REACTIONS (20)
  - Depression [Unknown]
  - Dizziness [Unknown]
  - Nephrolithiasis [Unknown]
  - Anal incontinence [Unknown]
  - Mood swings [Unknown]
  - Fatigue [Unknown]
  - Nausea [Unknown]
  - Flushing [Unknown]
  - Cognitive disorder [Unknown]
  - Visual impairment [Unknown]
  - Insomnia [Unknown]
  - Paraesthesia [Unknown]
  - Diarrhoea [Unknown]
  - Decreased appetite [Unknown]
  - Product use in unapproved indication [Unknown]
  - Arrhythmia [Unknown]
  - Weight decreased [Unknown]
  - Off label use [Unknown]
  - Drug ineffective [Unknown]
  - Headache [Unknown]
